FAERS Safety Report 7646146-6 (Version None)
Quarter: 2011Q3

REPORT INFORMATION
  Report Type: 
  Country: None (occurrence: None)
  Receive Date: 20110801
  Receipt Date: 20110726
  Transmission Date: 20111222
  Serious: Yes (Hospitalization)
  Sender: FDA-Public Use
  Company Number: US-BIOGENIDEC-2011BI025528

PATIENT
  Age: 83 Year
  Sex: Female

DRUGS (2)
  1. TYSABRI [Suspect]
     Indication: MULTIPLE SCLEROSIS
     Route: 042
     Dates: start: 20110705, end: 20110705
  2. COUMADIN [Concomitant]
     Indication: THROMBOSIS
     Dates: start: 20110424

REACTIONS (6)
  - HYPOTENSION [None]
  - DIZZINESS [None]
  - ANAPHYLACTIC REACTION [None]
  - HOT FLUSH [None]
  - FATIGUE [None]
  - FLUSHING [None]
